FAERS Safety Report 7068575-4 (Version None)
Quarter: 2010Q4

REPORT INFORMATION
  Report Type: 
  Country: None (occurrence: None)
  Receive Date: 20101028
  Receipt Date: 20101012
  Transmission Date: 20110411
  Serious: Yes (Other)
  Sender: FDA-Public Use
  Company Number: PHHY2010US68908

PATIENT
  Sex: Female

DRUGS (8)
  1. RECLAST [Suspect]
     Dosage: UNK
  2. MECLIZINE [Concomitant]
  3. TOPICORT [Concomitant]
  4. FLONASE [Concomitant]
     Dosage: UNK
  5. CALCIUM [Concomitant]
     Dosage: 600 IU, UNK
  6. VITAMIN D [Concomitant]
  7. GLUCOSAMINE [Concomitant]
  8. CHONDROITIN [Concomitant]

REACTIONS (11)
  - CAPILLARITIS [None]
  - ERYTHEMA [None]
  - HEADACHE [None]
  - HERPES ZOSTER [None]
  - IRRITABILITY [None]
  - MUSCLE SPASMS [None]
  - OEDEMA PERIPHERAL [None]
  - PAIN IN EXTREMITY [None]
  - PARAESTHESIA [None]
  - PRURITUS [None]
  - SKIN EXFOLIATION [None]
